FAERS Safety Report 4466640-9 (Version None)
Quarter: 2004Q4

REPORT INFORMATION
  Report Type: 
  Country: None (occurrence: None)
  Receive Date: 20041001
  Receipt Date: 20041001
  Transmission Date: 20050328
  Serious: Yes (Hospitalization)
  Sender: FDA-Public Use
  Company Number: None

PATIENT
  Age: 71 Year
  Sex: Female
  Weight: 53.5244 kg

DRUGS (2)
  1. VIOXX [Suspect]
     Indication: ARTHRALGIA
     Dosage: ONCE PER DAY
  2. VIOXX [Suspect]
     Indication: NECK PAIN
     Dosage: ONCE PER DAY

REACTIONS (1)
  - MYOCARDIAL INFARCTION [None]
